FAERS Safety Report 5067145-7 (Version None)
Quarter: 2006Q3

REPORT INFORMATION
  Report Type: 
  Country: None (occurrence: None)
  Receive Date: 20060726
  Receipt Date: 20060717
  Transmission Date: 20061208
  Serious: Yes (Other)
  Sender: FDA-Public Use
  Company Number: 2006-06-2086

PATIENT
  Age: 67 Year
  Sex: Male
  Weight: 96.1626 kg

DRUGS (3)
  1. PEG-INTRON [Suspect]
     Indication: HEPATITIS C
     Dosage: SUBCUTANEOUS
     Route: 058
     Dates: start: 20060120, end: 20060622
  2. RIBAVIRIN [Suspect]
     Indication: HEPATITIS C
     Dosage: ORAL
     Route: 048
     Dates: start: 20060120, end: 20060622
  3. LOTREL [Concomitant]

REACTIONS (9)
  - BLINDNESS UNILATERAL [None]
  - CEREBROVASCULAR ACCIDENT [None]
  - CONSTIPATION [None]
  - DYSGEUSIA [None]
  - FOOD INTOLERANCE [None]
  - RED BLOOD CELL COUNT DECREASED [None]
  - STOMACH DISCOMFORT [None]
  - SUNBURN [None]
  - VISUAL DISTURBANCE [None]
